FAERS Safety Report 7910035-X (Version None)
Quarter: 2011Q4

REPORT INFORMATION
  Report Type: 
  Country: None (occurrence: None)
  Receive Date: 20111111
  Receipt Date: 20110907
  Transmission Date: 20120403
  Serious: Yes (Other)
  Sender: FDA-Public Use
  Company Number: US-ABBOTT-11P-163-0854819-00

PATIENT
  Sex: Male
  Weight: 76.272 kg

DRUGS (9)
  1. HUMIRA [Suspect]
     Indication: CROHN'S DISEASE
  2. HUMIRA [Suspect]
     Indication: UVEITIS
     Route: 058
     Dates: start: 20110301, end: 20110817
  3. ENTOCORT EC [Concomitant]
     Indication: PRODUCT USED FOR UNKNOWN INDICATION
     Dosage: IN THE MORNING
     Route: 048
  4. OMEPRAZOLE [Concomitant]
     Indication: PRODUCT USED FOR UNKNOWN INDICATION
     Dosage: ONE DAILY, BEFORE A MEAL
     Route: 048
  5. PENTASA [Concomitant]
     Indication: PRODUCT USED FOR UNKNOWN INDICATION
     Route: 048
  6. PREDNISONE TAB [Concomitant]
     Indication: PRODUCT USED FOR UNKNOWN INDICATION
  7. FLOMAX [Concomitant]
     Indication: PRODUCT USED FOR UNKNOWN INDICATION
     Dosage: EVERY DAY 1/2 HOUR FOLLOWING THE SAME MEAL
     Route: 048
  8. HUMIRA [Suspect]
     Indication: ANKYLOSING SPONDYLITIS
     Route: 058
     Dates: start: 20110828
  9. CLONAZEPAM [Concomitant]
     Indication: PRODUCT USED FOR UNKNOWN INDICATION
     Route: 048

REACTIONS (6)
  - UVEITIS [None]
  - MYALGIA [None]
  - HEADACHE [None]
  - FATIGUE [None]
  - GASTROINTESTINAL DISORDER [None]
  - PAIN [None]
